FAERS Safety Report 9054202 (Version 1)
Quarter: 2013Q1

REPORT INFORMATION
  Report Type: Report from Study
  Country: ZA (occurrence: ZA)
  Receive Date: 20130208
  Receipt Date: 20130208
  Transmission Date: 20140127
  Serious: Yes (Other)
  Sender: FDA-Public Use
  Company Number: ZA-ROCHE-1187909

PATIENT
  Age: 55 None
  Sex: Male

DRUGS (9)
  1. MIRCERA [Suspect]
     Indication: RENAL FAILURE CHRONIC
     Route: 058
     Dates: start: 201209, end: 201302
  2. MIRCERA [Suspect]
     Route: 058
     Dates: start: 201011, end: 201205
  3. MIRCERA [Suspect]
     Route: 058
     Dates: start: 201206, end: 201208
  4. NOVOMIX 30 [Concomitant]
     Dosage: 14 U
     Route: 058
  5. LASIX [Concomitant]
     Route: 065
  6. ONE ALPHA [Concomitant]
     Route: 065
  7. ALTOSEC [Concomitant]
     Route: 065
  8. B-CAL-D [Concomitant]
     Route: 065
  9. DIAMICRON [Concomitant]
     Route: 065

REACTIONS (1)
  - Haemoglobin decreased [Recovered/Resolved]
